FAERS Safety Report 24926636 (Version 1)
Quarter: 2025Q1

REPORT INFORMATION
  Report Type: Spontaneous
  Country: PT (occurrence: PT)
  Receive Date: 20250205
  Receipt Date: 20250205
  Transmission Date: 20250408
  Serious: Yes (Other)
  Sender: GLAND PHARMA LTD
  Company Number: PT-GLANDPHARMA-PT-2025GLNLIT00122

PATIENT
  Age: 81 Year
  Sex: Female

DRUGS (1)
  1. DEXAMETHASONE SODIUM PHOSPHATE [Suspect]
     Active Substance: DEXAMETHASONE SODIUM PHOSPHATE
     Indication: Postoperative care
     Route: 065

REACTIONS (3)
  - Ulcerative keratitis [Recovered/Resolved]
  - Keratopathy [Recovered/Resolved]
  - Drug abuse [Unknown]
